FAERS Safety Report 12056836 (Version 4)
Quarter: 2016Q2

REPORT INFORMATION
  Report Type: Report from Study
  Country: US (occurrence: US)
  Receive Date: 20160209
  Receipt Date: 20160523
  Transmission Date: 20160815
  Serious: Yes (Hospitalization)
  Sender: FDA-Public Use
  Company Number: US-GILEAD-2016-0197267

PATIENT
  Age: 55 Year
  Sex: Female

DRUGS (15)
  1. NYSTATIN. [Concomitant]
     Active Substance: NYSTATIN
  2. FERROUS SULFATE. [Concomitant]
     Active Substance: FERROUS SULFATE
  3. ADEMPAS [Suspect]
     Active Substance: RIOCIGUAT
     Dosage: 1.0 MG - 0.5 MG - 0.5 MG
     Route: 065
  4. ZOLOFT [Concomitant]
     Active Substance: SERTRALINE HYDROCHLORIDE
  5. ADVAIR HFA [Concomitant]
     Active Substance: FLUTICASONE PROPIONATE\SALMETEROL XINAFOATE
  6. AMBRISENTAN [Suspect]
     Active Substance: AMBRISENTAN
     Indication: PULMONARY HYPERTENSION
     Dosage: 5 MG, QD
     Route: 065
     Dates: start: 20150512
  7. ADEMPAS [Suspect]
     Active Substance: RIOCIGUAT
     Indication: PULMONARY HYPERTENSION
     Dosage: 0.5 MG, TID
     Route: 065
     Dates: start: 20150529
  8. PREDNISONE. [Concomitant]
     Active Substance: PREDNISONE
  9. IPRATROPIUM/ALBUTEROL [Concomitant]
     Active Substance: ALBUTEROL\IPRATROPIUM
  10. SINGULAIR [Concomitant]
     Active Substance: MONTELUKAST SODIUM
  11. ZOCOR [Concomitant]
     Active Substance: SIMVASTATIN
  12. THIAMINE. [Concomitant]
     Active Substance: THIAMINE
  13. XANAX [Concomitant]
     Active Substance: ALPRAZOLAM
  14. LASIX [Concomitant]
     Active Substance: FUROSEMIDE
  15. ASPIRIN                            /00002701/ [Concomitant]
     Active Substance: ASPIRIN

REACTIONS (15)
  - Haematoma [Recovered/Resolved]
  - Drug dose omission [Unknown]
  - Dizziness [Unknown]
  - Procedural pain [Recovering/Resolving]
  - Decreased appetite [Unknown]
  - Blood potassium decreased [Not Recovered/Not Resolved]
  - Muscle spasms [Unknown]
  - Fluid retention [Unknown]
  - Dyspnoea [Not Recovered/Not Resolved]
  - Hypotension [Not Recovered/Not Resolved]
  - Dysphagia [Unknown]
  - Oedema peripheral [Not Recovered/Not Resolved]
  - Limb injury [Recovered/Resolved]
  - Dyspnoea [Unknown]
  - Oedema [Unknown]

NARRATIVE: CASE EVENT DATE: 201512
